FAERS Safety Report 13337570 (Version 1)
Quarter: 2017Q1

REPORT INFORMATION
  Report Type: Report from Study
  Country: CO (occurrence: CO)
  Receive Date: 20170315
  Receipt Date: 20170315
  Transmission Date: 20170428
  Serious: Yes (Death, Hospitalization, Other)
  Sender: FDA-Public Use
  Company Number: PHHY2016CO055894

PATIENT
  Age: 57 Year
  Sex: Male
  Weight: 55 kg

DRUGS (6)
  1. AFINITOR [Suspect]
     Active Substance: EVEROLIMUS
     Indication: PANCREATIC NEUROENDOCRINE TUMOUR
     Dosage: 10 MG, QD (AT 09:30 PM)
     Route: 048
     Dates: start: 20160404
  2. SERUM PHYSIOLOGICAL [Concomitant]
     Active Substance: SODIUM CHLORIDE
     Indication: PRODUCT USED FOR UNKNOWN INDICATION
     Route: 065
  3. TONIC [Concomitant]
     Indication: PRODUCT USED FOR UNKNOWN INDICATION
     Dosage: 5 INJECTIONS
     Route: 065
  4. SANDOSTATIN LAR DEPOT [Suspect]
     Active Substance: OCTREOTIDE ACETATE
     Indication: PANCREATIC NEUROENDOCRINE TUMOUR
     Dosage: 30 MG, QMO (EVERY 28 DAYS)
     Route: 030
     Dates: start: 20160304
  5. VITAMIN B COMPLEX [Concomitant]
     Active Substance: CYANOCOBALAMIN\DEXPANTHENOL\NIACINAMIDE\PYRIDOXINE HYDROCHLORIDE\RIBOFLAVIN 5^-PHOSPHATE SODIUM\THIAMINE HYDROCHLORIDE\VITAMIN B COMPLEX
     Indication: PRODUCT USED FOR UNKNOWN INDICATION
     Route: 060
  6. WHEY PROTEIN [Concomitant]
     Active Substance: WHEY
     Indication: PRODUCT USED FOR UNKNOWN INDICATION
     Dosage: UNK
     Route: 065

REACTIONS (41)
  - Abdominal discomfort [Not Recovered/Not Resolved]
  - Lymphocyte count decreased [Unknown]
  - Haemoglobin decreased [Recovered/Resolved]
  - Sleep disorder [Unknown]
  - Death [Fatal]
  - Flatulence [Unknown]
  - Neutrophil count decreased [Recovered/Resolved]
  - Lymphocyte count decreased [Recovered/Resolved]
  - Basophil percentage increased [Recovered/Resolved]
  - Blood lactate dehydrogenase increased [Unknown]
  - Metastases to lung [Unknown]
  - Diastasis recti abdominis [Unknown]
  - Adrenomegaly [Unknown]
  - Monocyte percentage increased [Unknown]
  - Nausea [Unknown]
  - Intervertebral disc disorder [Unknown]
  - Oral mucosal blistering [Unknown]
  - Monocyte percentage increased [Recovered/Resolved]
  - Red blood cell count decreased [Recovered/Resolved]
  - Aspartate aminotransferase increased [Unknown]
  - Pruritus [Unknown]
  - Rash generalised [Unknown]
  - Aggression [Unknown]
  - Malignant neoplasm progression [Unknown]
  - Weight decreased [Not Recovered/Not Resolved]
  - Eosinophil percentage increased [Recovered/Resolved]
  - Eating disorder [Unknown]
  - Metastases to liver [Unknown]
  - Hepatic lesion [Not Recovered/Not Resolved]
  - Abdominal injury [Unknown]
  - White blood cell count decreased [Recovered/Resolved]
  - Amnesia [Unknown]
  - Cerebral disorder [Unknown]
  - Aphonia [Unknown]
  - Diarrhoea [Not Recovered/Not Resolved]
  - Oral mucosal exfoliation [Not Recovered/Not Resolved]
  - Lymphocyte count decreased [Recovered/Resolved]
  - Calcium ionised decreased [Unknown]
  - Eosinophil percentage increased [Recovered/Resolved]
  - Alanine aminotransferase increased [Recovered/Resolved]
  - Fungal infection [Unknown]

NARRATIVE: CASE EVENT DATE: 20160411
